FAERS Safety Report 18342638 (Version 2)
Quarter: 2020Q4

REPORT INFORMATION
  Report Type: Report from Study
  Country: CO (occurrence: CO)
  Receive Date: 20201005
  Receipt Date: 20201012
  Transmission Date: 20210113
  Serious: Yes (Life-Threatening, Hospitalization, Other)
  Sender: FDA-Public Use
  Company Number: NVSC2019CO008562

PATIENT
  Sex: Male

DRUGS (2)
  1. TASIGNA [Suspect]
     Active Substance: NILOTINIB
     Indication: CHRONIC MYELOID LEUKAEMIA
     Dosage: 800 MG, QD
     Route: 048
     Dates: start: 20190813
  2. TASIGNA [Suspect]
     Active Substance: NILOTINIB
     Dosage: 800 MG, QD
     Route: 048

REACTIONS (10)
  - Apparent death [Unknown]
  - Hepatitis [Unknown]
  - Gastritis [Unknown]
  - Malaise [Unknown]
  - Depression [Unknown]
  - Inappropriate schedule of product administration [Unknown]
  - Stomach mass [Unknown]
  - Abdominal distension [Unknown]
  - Hepatomegaly [Unknown]
  - Spleen disorder [Unknown]
